FAERS Safety Report 9238798 (Version 1)
Quarter: 2013Q1

REPORT INFORMATION
  Report Type: Spontaneous
  Country: US (occurrence: None)
  Receive Date: 20121107
  Receipt Date: 20121107
  Transmission Date: 20140127
  Serious: No
  Sender: FDA-Public Use
  Company Number: 2012HGS-003810

PATIENT
  Age: 52 Year
  Sex: Female
  Weight: 56.7 kg

DRUGS (4)
  1. BENLYSTA [Suspect]
     Indication: SYSTEMIC LUPUS ERYTHEMATOSUS
     Dosage: 1 IN 28 D
     Route: 041
     Dates: start: 20120101
  2. PREDNISONE (PREDNISONE) (PREDNISONE) [Concomitant]
  3. METHOTREXATE (METHOTREXATE SODIUM) (METHOTREXATE SODIUM) [Concomitant]
  4. PAXIL (PAROXETINE HYDROHHLORIDE) (PAROXETINE HYDROCHLORIDE) [Concomitant]

REACTIONS (3)
  - Onychomycosis [None]
  - Tongue ulceration [None]
  - Contusion [None]
